FAERS Safety Report 10527570 (Version 1)
Quarter: 2014Q4

REPORT INFORMATION
  Report Type: Spontaneous
  Country: US (occurrence: None)
  Receive Date: 20141016
  Receipt Date: 20141016
  Transmission Date: 20150528
  Serious: No
  Sender: FDA-Public Use
  Company Number: None

PATIENT
  Age: 68 Year
  Sex: Female
  Weight: 68.04 kg

DRUGS (1)
  1. TRAMADOL [Suspect]
     Active Substance: TRAMADOL
     Indication: ARTHRALGIA
     Dosage: EVERY 12 HOURS

REACTIONS (3)
  - Muscle spasms [None]
  - Drug ineffective [None]
  - Speech disorder [None]

NARRATIVE: CASE EVENT DATE: 20110611
